FAERS Safety Report 23765036 (Version 1)
Quarter: 2024Q2

REPORT INFORMATION
  Report Type: Spontaneous
  Country: US (occurrence: US)
  Receive Date: 20240420
  Receipt Date: 20240420
  Transmission Date: 20240715
  Serious: No
  Sender: FDA-Public Use
  Company Number: US-SA-SAC20240417000785

PATIENT
  Sex: Male

DRUGS (2)
  1. LANTUS [Suspect]
     Active Substance: INSULIN GLARGINE
     Dosage: 90 IU
  2. LANTUS [Suspect]
     Active Substance: INSULIN GLARGINE
     Dosage: 95 IU

REACTIONS (1)
  - Intentional product misuse [Unknown]
